FAERS Safety Report 5937056-0 (Version None)
Quarter: 2008Q4

REPORT INFORMATION
  Report Type: 
  Country: None (occurrence: None)
  Receive Date: 20081031
  Receipt Date: 20081024
  Transmission Date: 20090506
  Serious: Yes (Hospitalization)
  Sender: FDA-Public Use
  Company Number: JP-BAYER-200711051BYL

PATIENT
  Age: 55 Year
  Sex: Female

DRUGS (9)
  1. AVELOX [Suspect]
     Indication: BRONCHITIS
     Dosage: TOTAL DAILY DOSE: 400 MG  UNIT DOSE: 400 MG
     Route: 048
     Dates: start: 20071212, end: 20071212
  2. SINSTATIN [Concomitant]
     Indication: HYPERLIPIDAEMIA
     Dosage: TOTAL DAILY DOSE: 10 MG  UNIT DOSE: 5 MG
     Route: 048
     Dates: start: 20060721
  3. CORENSOUL [Concomitant]
     Indication: BRONCHITIS
     Dosage: TOTAL DAILY DOSE: 300 MG  UNIT DOSE: 100 MG
     Route: 048
     Dates: start: 20071212, end: 20071212
  4. LYSOZYME HYDROCHLORIDE [Concomitant]
     Indication: BRONCHITIS
     Dosage: TOTAL DAILY DOSE: 270 MG  UNIT DOSE: 90 MG
     Route: 048
     Dates: start: 20071212, end: 20071212
  5. HUSCODE [Concomitant]
     Indication: BRONCHITIS
     Route: 048
     Dates: start: 20071212, end: 20071212
  6. AZULENE [Concomitant]
     Indication: BRONCHITIS
     Dosage: TOTAL DAILY DOSE: 4.5 G  UNIT DOSE: 1.5 G
     Route: 002
     Dates: start: 20071212, end: 20071212
  7. SOLUSONE [Concomitant]
     Indication: BRONCHITIS
     Dosage: TOTAL DAILY DOSE: 500 MG  UNIT DOSE: 500 MG
     Route: 041
     Dates: start: 20071212, end: 20071212
  8. CEFAPICOL [Concomitant]
     Indication: BRONCHITIS
     Dosage: TOTAL DAILY DOSE: 1 G  UNIT DOSE: 1 G
     Route: 041
     Dates: start: 20071212, end: 20071212
  9. ZALTIRON [Concomitant]
     Indication: BRONCHITIS
     Route: 041
     Dates: start: 20071212, end: 20071212

REACTIONS (3)
  - HYPERVENTILATION [None]
  - HYPOAESTHESIA [None]
  - PSYCHOMOTOR HYPERACTIVITY [None]
